FAERS Safety Report 10515886 (Version 1)
Quarter: 2014Q4

REPORT INFORMATION
  Report Type: Spontaneous
  Country: US (occurrence: None)
  Receive Date: 20141001
  Receipt Date: 20141001
  Transmission Date: 20150528
  Serious: Yes (Other)
  Sender: FDA-Public Use
  Company Number: 2014002875

PATIENT
  Sex: Female

DRUGS (2)
  1. VIMPAT [Suspect]
     Active Substance: LACOSAMIDE
  2. LEVETIRACETAM (LEVEITRCETAM) [Suspect]
     Active Substance: LEVETIRACETAM

REACTIONS (1)
  - Seizure [None]
